FAERS Safety Report 6751307-4 (Version None)
Quarter: 2010Q2

REPORT INFORMATION
  Report Type: 
  Country: None (occurrence: None)
  Receive Date: 20100602
  Receipt Date: 20100519
  Transmission Date: 20101027
  Serious: Yes (Hospitalization)
  Sender: FDA-Public Use
  Company Number: PHHY2010JP26093

PATIENT
  Sex: Male
  Weight: 61 kg

DRUGS (13)
  1. FLUVASTATIN [Suspect]
     Indication: DYSLIPIDAEMIA
     Dosage: 20 MG DAILY
     Route: 048
     Dates: start: 20071213, end: 20100216
  2. FLUVASTATIN SODIUM [Suspect]
     Indication: DYSLIPIDAEMIA
     Dosage: UNK
     Route: 048
     Dates: start: 20100217, end: 20100415
  3. RENIVACE [Suspect]
     Indication: HYPERTENSION
     Dosage: 5 MG, UNK
     Route: 048
     Dates: start: 20030404, end: 20100216
  4. ENALAPRIL [Suspect]
     Indication: HYPERTENSION
     Dosage: 5 MG, UNK
     Route: 048
     Dates: start: 20100217, end: 20100415
  5. AMARYL [Concomitant]
     Indication: DIABETES MELLITUS
     Dosage: 4 MG, UNK
     Route: 048
     Dates: start: 20040929, end: 20100415
  6. ACTOS [Concomitant]
     Indication: DIABETES MELLITUS
     Dosage: 15 MG, UNK
     Route: 048
     Dates: start: 20070319, end: 20100415
  7. ALLELOCK [Concomitant]
     Dosage: 5 MG, UNK
     Route: 048
     Dates: start: 20070419, end: 20100415
  8. DERMIZOL G [Concomitant]
     Indication: PRURITUS
     Dosage: UNK
     Dates: start: 20070419, end: 20100415
  9. ZINC OXIDE [Concomitant]
     Indication: PRURITUS
     Dosage: UNK
     Dates: start: 20070419, end: 20100415
  10. DERMIZOL [Concomitant]
     Indication: PRURITUS
     Dosage: UNK TSP, UNK
     Dates: start: 20081007, end: 20100415
  11. HIRUDOID [Concomitant]
     Indication: PRURITUS
     Dosage: UNK
     Dates: start: 20081007, end: 20100415
  12. RINDERON-VG [Concomitant]
     Indication: PRURITUS
     Dosage: UNK
     Dates: start: 20090717, end: 20100415
  13. ASTAT [Concomitant]
     Indication: ANTIFUNGAL TREATMENT
     Dosage: UNK
     Dates: start: 20070419, end: 20100415

REACTIONS (7)
  - C-REACTIVE PROTEIN INCREASED [None]
  - COUGH [None]
  - DYSPNOEA [None]
  - INTERSTITIAL LUNG DISEASE [None]
  - PRODUCTIVE COUGH [None]
  - PYREXIA [None]
  - RHINORRHOEA [None]
